FAERS Safety Report 12713613 (Version 1)
Quarter: 2016Q3

REPORT INFORMATION
  Report Type: Spontaneous
  Country: US (occurrence: US)
  Receive Date: 20160903
  Receipt Date: 20160903
  Transmission Date: 20161109
  Serious: Yes (Other)
  Sender: FDA-Public Use
  Company Number: US-AMGEN-USASP2016116518

PATIENT
  Age: 71 Year

DRUGS (2)
  1. XGEVA [Suspect]
     Active Substance: DENOSUMAB
     Indication: OSTEOPOROSIS
     Dosage: ONCE A YEAR
     Route: 065
  2. ELIGARD [Concomitant]
     Active Substance: LEUPROLIDE ACETATE
     Indication: OSTEOPOROSIS
     Dosage: UNK UNK, Q3MO

REACTIONS (6)
  - Large intestine perforation [Unknown]
  - Off label use [Unknown]
  - Hyperhidrosis [Recovered/Resolved]
  - Metastatic neoplasm [Unknown]
  - Sepsis [Unknown]
  - Inappropriate schedule of drug administration [Unknown]
